FAERS Safety Report 14908099 (Version 1)
Quarter: 2018Q2

REPORT INFORMATION
  Report Type: Other
  Country: US (occurrence: US)
  Receive Date: 20180517
  Receipt Date: 20180517
  Transmission Date: 20180711
  Serious: Yes (Other)
  Sender: FDA-Public Use
  Company Number: US-ACORDA-ACO_149886_2018

PATIENT
  Age: 56 Year
  Sex: Female

DRUGS (1)
  1. AMPYRA [Suspect]
     Active Substance: DALFAMPRIDINE
     Indication: MULTIPLE SCLEROSIS
     Dosage: 10 MG, BID
     Route: 048
     Dates: start: 2011

REACTIONS (6)
  - Contraindicated product administered [Unknown]
  - Feeling abnormal [Unknown]
  - Focal dyscognitive seizures [Unknown]
  - Confusional state [Unknown]
  - Metamorphopsia [Unknown]
  - Thinking abnormal [Unknown]
